FAERS Safety Report 7946242-X (Version None)
Quarter: 2011Q4

REPORT INFORMATION
  Report Type: 
  Country: None (occurrence: None)
  Receive Date: 20111129
  Receipt Date: 20111123
  Transmission Date: 20120403
  Serious: Yes (Other)
  Sender: FDA-Public Use
  Company Number: BE-ROCHE-1016237

PATIENT
  Age: 73 Year
  Sex: Female

DRUGS (5)
  1. PIROXICAM [Concomitant]
  2. REDOMEX [Concomitant]
  3. ACTEMRA [Suspect]
     Indication: RHEUMATOID ARTHRITIS
     Route: 042
     Dates: start: 20111017
  4. PANTOPRAZOLE [Concomitant]
  5. SULPIRIDE [Concomitant]

REACTIONS (1)
  - DEEP VEIN THROMBOSIS [None]
